FAERS Safety Report 5272973-9 (Version None)
Quarter: 2007Q1

REPORT INFORMATION
  Report Type: 
  Country: None (occurrence: None)
  Receive Date: 20070322
  Receipt Date: 20070319
  Transmission Date: 20070707
  Serious: Yes (Hospitalization, Disabling)
  Sender: FDA-Public Use
  Company Number: 2006SE06619

PATIENT
  Age: 59 Year
  Sex: Female
  Weight: 80 kg

DRUGS (2)
  1. BLOPRESS PLUS [Suspect]
     Indication: HYPERTENSION
     Dosage: CANDESARTAN CILEXETIL 16 MG PLUS HYDROCHLOROTHIAZIDE 12.5 MG
     Route: 048
     Dates: start: 20030101, end: 20060101
  2. NOVOTHYRAL [Concomitant]
     Route: 048

REACTIONS (2)
  - HEPATIC CIRRHOSIS [None]
  - HEPATITIS [None]
